FAERS Safety Report 9241060 (Version 2)
Quarter: 2013Q3

REPORT INFORMATION
  Report Type: Spontaneous
  Country: US (occurrence: US)
  Receive Date: 20130419
  Receipt Date: 20130821
  Transmission Date: 20140515
  Serious: Yes (Other)
  Sender: FDA-Public Use
  Company Number: US-PFIZER INC-2013122796

PATIENT
  Age: 77 Year
  Sex: Male
  Weight: 79.37 kg

DRUGS (10)
  1. SUTENT [Suspect]
     Indication: METASTATIC RENAL CELL CARCINOMA
     Dosage: 50 MG, 1X/DAY, 2 WEEKS ON/4 WEEKS OFF
     Route: 048
     Dates: start: 200806
  2. SUTENT [Suspect]
     Dosage: 50 MG, 1X/DAY
     Dates: start: 200506, end: 20130815
  3. UROXATRAL [Concomitant]
     Dosage: UNK
  4. LIPITOR [Concomitant]
     Dosage: UNK
  5. OMEPRAZOLE [Concomitant]
     Dosage: UNK
  6. VITAMIN B12 [Concomitant]
     Dosage: UNK
  7. LEVOTHYROXINE [Concomitant]
     Dosage: UNK
  8. HYDROCHLOROTHIAZIDE [Concomitant]
     Indication: BLOOD PRESSURE ABNORMAL
     Dosage: UNK
  9. GLIMEPIRIDE [Concomitant]
     Indication: TYPE 2 DIABETES MELLITUS
     Dosage: UNK
  10. IMODIUM [Concomitant]
     Indication: DIARRHOEA
     Dosage: UNK

REACTIONS (5)
  - Intestinal cyst [Recovered/Resolved]
  - Pneumatosis [Recovered/Resolved]
  - White blood cell count decreased [Unknown]
  - Red blood cell count decreased [Unknown]
  - Thyroid disorder [Not Recovered/Not Resolved]
